FAERS Safety Report 5152593-7 (Version None)
Quarter: 2006Q4

REPORT INFORMATION
  Report Type: 
  Country: None (occurrence: None)
  Receive Date: 20061109
  Receipt Date: 20061026
  Transmission Date: 20070319
  Serious: Yes (Other)
  Sender: FDA-Public Use
  Company Number: 06-0139PO

PATIENT
  Age: 51 Year
  Sex: Female

DRUGS (5)
  1. MEFENAMIC ACID [Suspect]
     Dosage: 500 MG, ORAL
     Route: 048
     Dates: start: 20000101, end: 20061015
  2. MODURETIC 5-50 [Concomitant]
  3. ASPIRIN [Concomitant]
  4. HYDROCHLOROTHIAZIDE [Concomitant]
  5. VENCOUR TRIPLEX (RUTOSIDE/AESCULUS/HIPPOCASTANUM L/ MIROT) [Concomitant]

REACTIONS (5)
  - BACK PAIN [None]
  - FEELING ABNORMAL [None]
  - HYPERSENSITIVITY [None]
  - LARYNGEAL OEDEMA [None]
  - RASH GENERALISED [None]
